FAERS Safety Report 18363876 (Version 1)
Quarter: 2020Q4

REPORT INFORMATION
  Report Type: Spontaneous
  Country: CN (occurrence: CN)
  Receive Date: 20201009
  Receipt Date: 20201009
  Transmission Date: 20210114
  Serious: Yes (Other)
  Sender: FDA-Public Use
  Company Number: CN-JNJFOC-20200953704

PATIENT
  Age: 3 Day
  Sex: Female
  Weight: 1.54 kg

DRUGS (1)
  1. CHILDRENS MOTRIN [Suspect]
     Active Substance: IBUPROFEN
     Indication: PATENT DUCTUS ARTERIOSUS
     Dosage: AT 8:21 ON 09-SEP-2020, THE PATIENT WAS GIVEN IBUPROFEN 10 MG/KG (THE FIRST DOSE)
     Route: 048
     Dates: start: 20200909, end: 20200909

REACTIONS (1)
  - Oliguria [Recovering/Resolving]

NARRATIVE: CASE EVENT DATE: 20200909
